FAERS Safety Report 19772851 (Version 10)
Quarter: 2024Q1

REPORT INFORMATION
  Report Type: Spontaneous
  Country: FR (occurrence: FR)
  Receive Date: 20210901
  Receipt Date: 20240102
  Transmission Date: 20240409
  Serious: Yes (Hospitalization, Other)
  Sender: FDA-Public Use
  Company Number: FR-ROCHE-2874545

PATIENT
  Age: 61 Year
  Sex: Male
  Weight: 68 kg

DRUGS (16)
  1. CARBOPLATIN [Suspect]
     Active Substance: CARBOPLATIN
     Indication: Non-small cell lung cancer metastatic
     Dosage: UNK
     Route: 065
     Dates: start: 20191118
  2. PACLITAXEL [Suspect]
     Active Substance: PACLITAXEL
     Indication: Non-small cell lung cancer metastatic
     Dosage: UNK
     Route: 065
     Dates: start: 20191118
  3. ATEZOLIZUMAB [Suspect]
     Active Substance: ATEZOLIZUMAB
     Indication: Non-small cell lung cancer metastatic
     Dosage: 1200 MILLIGRAM, 3 TIMES A WEEK,(MOST RECENT DOSE OF ATEZOLIZUMAB 1200 MG PRIOR TO AE/SAE: 28/DEC/201
     Route: 041
     Dates: start: 20190715
  4. WHOLE BLOOD [Concomitant]
     Active Substance: WHOLE BLOOD
     Indication: Product used for unknown indication
     Dosage: UNK, ONCE A DAY
     Route: 065
     Dates: start: 20191228
  5. ERYTHROPOIETIN [Concomitant]
     Active Substance: ERYTHROPOIETIN
     Indication: Product used for unknown indication
     Dosage: UNK, ONCE A DAY
     Route: 065
     Dates: start: 20200217
  6. CISPLATIN [Concomitant]
     Active Substance: CISPLATIN
     Indication: Product used for unknown indication
     Dosage: UNK
     Route: 065
  7. DAFALGAN [Concomitant]
     Active Substance: ACETAMINOPHEN
     Indication: Product used for unknown indication
     Dosage: UNK
     Route: 065
     Dates: start: 20191229
  8. GEMCITABINE [Concomitant]
     Active Substance: GEMCITABINE
     Indication: Product used for unknown indication
     Dosage: UNK
     Route: 065
  9. NIVOLUMAB [Concomitant]
     Active Substance: NIVOLUMAB
     Indication: Product used for unknown indication
     Dosage: UNK
     Route: 065
  10. PANTOPRAZOLE [Concomitant]
     Active Substance: PANTOPRAZOLE
     Indication: Product used for unknown indication
     Dosage: UNK
     Route: 065
     Dates: start: 20191229
  11. PRIMPERAN [Concomitant]
     Active Substance: METOCLOPRAMIDE HYDROCHLORIDE
     Indication: Product used for unknown indication
     Dosage: UNK, ONCE A DAY
     Route: 065
     Dates: start: 20191230
  12. PEMETREXED [Concomitant]
     Active Substance: PEMETREXED
     Indication: Product used for unknown indication
     Dosage: UNK
     Route: 065
  13. FOLIC ACID [Concomitant]
     Active Substance: FOLIC ACID
     Indication: Product used for unknown indication
     Dosage: UNK(0.5 DAY)
     Route: 065
     Dates: start: 20191230
  14. SMECTA [Concomitant]
     Active Substance: MONTMORILLONITE
     Indication: Product used for unknown indication
     Dosage: UNK(0.33 DAY)
     Route: 065
     Dates: start: 20191228
  15. OXAZEPAM [Concomitant]
     Active Substance: OXAZEPAM
     Indication: Product used for unknown indication
     Dosage: UNK(0.5 DAY)
     Route: 065
     Dates: start: 20191228
  16. RACECADOTRIL [Concomitant]
     Active Substance: RACECADOTRIL
     Indication: Product used for unknown indication
     Dosage: UNK (0.5 DAY)
     Route: 065
     Dates: start: 20191230

REACTIONS (7)
  - Anaemia [Recovered/Resolved]
  - Bone marrow failure [Not Recovered/Not Resolved]
  - White blood cell count decreased [Recovered/Resolved]
  - Diarrhoea [Not Recovered/Not Resolved]
  - Oedema peripheral [Recovering/Resolving]
  - Paraesthesia [Not Recovered/Not Resolved]
  - Vomiting [Not Recovered/Not Resolved]

NARRATIVE: CASE EVENT DATE: 20190916
